FAERS Safety Report 5258771-0 (Version None)
Quarter: 2007Q1

REPORT INFORMATION
  Report Type: 
  Country: None (occurrence: None)
  Receive Date: 20070306
  Receipt Date: 20070306
  Transmission Date: 20070707
  Serious: Yes (Hospitalization)
  Sender: FDA-Public Use
  Company Number: None

PATIENT
  Age: 54 Year
  Sex: Female

DRUGS (4)
  1. KETEK [Suspect]
     Indication: PNEUMONIA
     Dosage: ONCE DAILY  PO
     Route: 048
     Dates: start: 20070118, end: 20070128
  2. KETEK [Suspect]
     Indication: SINUSITIS
     Dosage: ONCE DAILY  PO
     Route: 048
     Dates: start: 20070118, end: 20070128
  3. KETEK [Suspect]
     Indication: UPPER RESPIRATORY TRACT INFECTION
     Dosage: ONCE DAILY  PO
     Route: 048
     Dates: start: 20070118, end: 20070128
  4. LEVAQUIN [Concomitant]

REACTIONS (3)
  - EOSINOPHILIA [None]
  - HEPATITIS ACUTE [None]
  - HEPATOMEGALY [None]
